FAERS Safety Report 6242053-4 (Version None)
Quarter: 2009Q2

REPORT INFORMATION
  Report Type: 
  Country: None (occurrence: None)
  Receive Date: 20090615
  Receipt Date: 20090602
  Transmission Date: 20091009
  Serious: Yes (Other)
  Sender: FDA-Public Use
  Company Number: 200711387

PATIENT
  Age: 32 Year
  Sex: Female

DRUGS (2)
  1. RHO(D) IMMUNE GLOBULIN NOS [Suspect]
     Indication: ABORTION SPONTANEOUS
     Dosage: 200 UG
     Route: 030
     Dates: start: 20060601, end: 20060601
  2. RHO(D) IMMUNE GLOBULIN NOS [Suspect]
     Indication: PROPHYLAXIS AGAINST RH ISOIMMUNISATION
     Dosage: 200 UG
     Route: 030
     Dates: start: 20060601, end: 20060601

REACTIONS (5)
  - FACE OEDEMA [None]
  - MUCOUS MEMBRANE DISORDER [None]
  - RASH GENERALISED [None]
  - SKIN BURNING SENSATION [None]
  - SKIN EXFOLIATION [None]
